FAERS Safety Report 9442405 (Version 1)
Quarter: 2013Q3

REPORT INFORMATION
  Report Type: Spontaneous
  Country: US (occurrence: US)
  Receive Date: 20130806
  Receipt Date: 20130806
  Transmission Date: 20140515
  Serious: No
  Sender: FDA-Public Use
  Company Number: US-GLAXOSMITHKLINE-A1020218A

PATIENT
  Age: 67 Year
  Sex: Female
  Weight: 99.1 kg

DRUGS (7)
  1. ADVAIR [Suspect]
     Indication: ASTHMA
     Dosage: 2PUFF TWICE PER DAY
     Route: 055
     Dates: start: 201302, end: 20130301
  2. COMBIVENT [Concomitant]
  3. INSULIN [Concomitant]
  4. LEVOTHROID [Concomitant]
  5. ALBUTEROL [Concomitant]
  6. AVAPRO [Concomitant]
  7. OMEPRAZOLE [Concomitant]

REACTIONS (4)
  - Headache [Recovered/Resolved]
  - Tremor [Recovered/Resolved]
  - Inhalation therapy [Recovered/Resolved]
  - Blood pressure increased [Recovered/Resolved]
